FAERS Safety Report 8565105-2 (Version None)
Quarter: 2012Q3

REPORT INFORMATION
  Report Type: 
  Country: None (occurrence: None)
  Receive Date: 20120803
  Receipt Date: 20120731
  Transmission Date: 20120928
  Serious: No
  Sender: FDA-Public Use
  Company Number: US-PFIZER INC-2012148261

PATIENT
  Sex: Female

DRUGS (8)
  1. LASIX [Concomitant]
     Dosage: UNK
  2. CADUET [Suspect]
     Indication: BLOOD CHOLESTEROL
  3. NORVASC [Suspect]
     Indication: HYPERTENSION
     Dosage: UNK
     Route: 048
     Dates: start: 19980715
  4. XANAX [Concomitant]
     Dosage: UNK
  5. PROTONIX [Concomitant]
     Dosage: UNK
  6. CADUET [Suspect]
     Indication: BLOOD PRESSURE
     Dosage: UNK
  7. LIPITOR [Concomitant]
     Dosage: UNK
  8. ZOLOFT [Concomitant]
     Dosage: UNK

REACTIONS (1)
  - HYPOTHYROIDISM [None]
